FAERS Safety Report 5895880-7 (Version None)
Quarter: 2008Q3

REPORT INFORMATION
  Report Type: 
  Country: None (occurrence: None)
  Receive Date: 20080924
  Receipt Date: 20080916
  Transmission Date: 20090109
  Serious: Yes (Hospitalization)
  Sender: FDA-Public Use
  Company Number: US-CELGENEUS-163-21880-08071134

PATIENT
  Sex: Female

DRUGS (2)
  1. REVLIMID [Suspect]
     Indication: MULTIPLE MYELOMA
     Route: 048
     Dates: start: 20080703, end: 20080701
  2. REVLIMID [Suspect]
     Route: 048
     Dates: start: 20080728

REACTIONS (2)
  - CARDIAC DISORDER [None]
  - DRUG INEFFECTIVE [None]
